FAERS Safety Report 4963835-2 (Version None)
Quarter: 2006Q1

REPORT INFORMATION
  Report Type: 
  Country: None (occurrence: None)
  Receive Date: 20060330
  Receipt Date: 20060313
  Transmission Date: 20060701
  Serious: Yes (Hospitalization)
  Sender: FDA-Public Use
  Company Number: GR200603003898

PATIENT
  Age: 50 Year
  Sex: Female
  Weight: 45 kg

DRUGS (2)
  1. FORTEO [Suspect]
     Indication: OSTEOPOROSIS
     Dosage: 20 UG, DAILY (1/D), SUBCUTANEOUS
     Route: 058
     Dates: start: 20040301, end: 20040601
  2. FORTEO PEN (FORTEO PEN) [Concomitant]

REACTIONS (5)
  - ARTHRALGIA [None]
  - CONCOMITANT DISEASE PROGRESSION [None]
  - HAEMOSIDEROSIS [None]
  - PULMONARY OEDEMA [None]
  - THALASSAEMIA [None]
